FAERS Safety Report 21532266 (Version 2)
Quarter: 2022Q4

REPORT INFORMATION
  Report Type: Other
  Country: KZ (occurrence: KZ)
  Receive Date: 20221101
  Receipt Date: 20221206
  Transmission Date: 20230113
  Serious: Yes (Other)
  Sender: FDA-Public Use
  Company Number: KZ-MACLEODS PHARMACEUTICALS LTD. KAZAKHSTAN-MAC2022038017

PATIENT

DRUGS (8)
  1. PYRAZINAMIDE [Suspect]
     Active Substance: PYRAZINAMIDE
     Indication: Pulmonary tuberculosis
     Dosage: 1 DOSAGE FORM, QD
     Route: 048
     Dates: start: 20220112, end: 20220112
  2. PYRAZINAMIDE [Suspect]
     Active Substance: PYRAZINAMIDE
     Indication: Tuberculosis
     Dosage: 1 DOSAGE FORM, QD
     Route: 048
     Dates: start: 20220203, end: 20220203
  3. Kombutol [Concomitant]
     Indication: Pulmonary tuberculosis
     Dosage: 1200 MILLIGRAM, QD
     Route: 065
     Dates: start: 20220111, end: 20220111
  4. Kombutol [Concomitant]
     Indication: Tuberculosis
  5. RIFAMPIN [Concomitant]
     Active Substance: RIFAMPIN
     Indication: Pulmonary tuberculosis
     Dosage: 600 MILLIGRAM, QD
     Route: 065
  6. RIFAMPIN [Concomitant]
     Active Substance: RIFAMPIN
     Indication: Tuberculosis
  7. ISONIAZID [Concomitant]
     Active Substance: ISONIAZID
     Indication: Pulmonary tuberculosis
     Dosage: 300 MILLIGRAM, QD
     Route: 065
  8. ISONIAZID [Concomitant]
     Active Substance: ISONIAZID
     Indication: Tuberculosis

REACTIONS (5)
  - Hyperaemia [Recovering/Resolving]
  - Dermatitis allergic [Recovering/Resolving]
  - Drug intolerance [Recovering/Resolving]
  - Pruritus [Recovering/Resolving]
  - Rash [Recovering/Resolving]

NARRATIVE: CASE EVENT DATE: 20220111
